FAERS Safety Report 16990513 (Version 1)
Quarter: 2019Q4

REPORT INFORMATION
  Report Type: Spontaneous
  Country: CA (occurrence: CA)
  Receive Date: 20191104
  Receipt Date: 20191104
  Transmission Date: 20200122
  Serious: Yes (Hospitalization)
  Sender: FDA-Public Use
  Company Number: CA-PFIZER INC-2019467280

PATIENT
  Age: 10 Year
  Sex: Male

DRUGS (8)
  1. LEVETIRACETAM. [Suspect]
     Active Substance: LEVETIRACETAM
     Indication: PARTIAL SEIZURES
     Dosage: UNK
  2. ACYCLOVIR [ACICLOVIR] [Concomitant]
     Active Substance: ACYCLOVIR
     Dosage: UNK
  3. CEFTRIAXONE SODIUM. [Concomitant]
     Active Substance: CEFTRIAXONE SODIUM
     Dosage: UNK
  4. LORAZEPAM. [Suspect]
     Active Substance: LORAZEPAM
     Indication: PARTIAL SEIZURES
     Dosage: UNK
  5. PENTOBARBITAL. [Suspect]
     Active Substance: PENTOBARBITAL
     Dosage: UNK
  6. PENTOBARBITAL. [Suspect]
     Active Substance: PENTOBARBITAL
     Indication: PARTIAL SEIZURES
     Dosage: UNK
  7. VALPROIC ACID. [Suspect]
     Active Substance: VALPROIC ACID
     Indication: PARTIAL SEIZURES
     Dosage: UNK
  8. VANCOMYCIN [Concomitant]
     Active Substance: VANCOMYCIN
     Dosage: UNK

REACTIONS (5)
  - Seizure [Unknown]
  - Eosinophilia [Unknown]
  - Rash maculo-papular [Unknown]
  - Drug hypersensitivity [Unknown]
  - Drug ineffective [Unknown]
